FAERS Safety Report 9728118 (Version 2)
Quarter: 2013Q4

REPORT INFORMATION
  Report Type: Spontaneous
  Country: US (occurrence: US)
  Receive Date: 20131204
  Receipt Date: 20131204
  Transmission Date: 20140711
  Serious: Yes (Other)
  Sender: FDA-Public Use
  Company Number: US-CELGENEUS-163-20785-13105669

PATIENT
  Age: 75 Year
  Sex: Female
  Weight: 96.7 kg

DRUGS (17)
  1. THALOMID [Suspect]
     Indication: PLASMA CELL MYELOMA
     Dosage: 50 MILLIGRAM
     Route: 048
     Dates: start: 201001, end: 201105
  2. THALOMID [Suspect]
     Dosage: 50 MILLIGRAM
     Route: 048
     Dates: start: 20130831, end: 20131028
  3. ACETAMINOPHEN [Concomitant]
     Indication: BACK PAIN
     Dosage: 2000 MILLIGRAM
     Route: 048
  4. ALENDRONATE [Concomitant]
     Indication: PRODUCT USED FOR UNKNOWN INDICATION
     Dosage: 10 MILLIGRAM
     Route: 048
  5. ASPIRIN [Concomitant]
     Indication: PRODUCT USED FOR UNKNOWN INDICATION
     Dosage: 325 MILLIGRAM
     Route: 048
  6. CALCIUM CITRATE W/VITAMIN D3 [Concomitant]
     Indication: PRODUCT USED FOR UNKNOWN INDICATION
     Dosage: 400MG/500UNITS
     Route: 048
  7. DARBEPOETIN ALFA [Concomitant]
     Indication: ANAEMIA
     Dosage: 10.7143 MICROGRAM
     Route: 058
  8. FLUOXETINE [Concomitant]
     Indication: PRODUCT USED FOR UNKNOWN INDICATION
     Dosage: 40 MILLIGRAM
     Route: 048
  9. HYDROCODONE/ACETAMINOPHEN [Concomitant]
     Indication: PAIN
     Dosage: 5-325MG
     Route: 048
  10. LATANOPROST [Concomitant]
     Indication: OPEN ANGLE GLAUCOMA
     Dosage: 1 DROPS
     Route: 047
  11. MVI [Concomitant]
     Indication: PRODUCT USED FOR UNKNOWN INDICATION
     Route: 048
  12. DOCUSATE SODIUM\SENNOSIDES [Concomitant]
     Indication: CONSTIPATION
     Dosage: 3 X 5.6-50MG
     Route: 048
  13. SIMVASTATIN [Concomitant]
     Indication: PRODUCT USED FOR UNKNOWN INDICATION
     Dosage: 40 MILLIGRAM
     Route: 048
  14. ACYCLOVIR [Concomitant]
     Indication: HERPES ZOSTER
     Dosage: 800 MILLIGRAM
     Route: 048
  15. CYCLOBENZAPRINE [Concomitant]
     Indication: MUSCLE SPASMS
     Dosage: 30 MILLIGRAM
     Route: 048
  16. ONDANSETRON [Concomitant]
     Indication: NAUSEA
     Dosage: 24 MILLIGRAM
     Route: 048
  17. PROCHLORPERAZINE [Concomitant]
     Indication: NAUSEA
     Dosage: 40 MILLIGRAM
     Route: 048

REACTIONS (4)
  - Fall [Unknown]
  - Spinal fracture [Unknown]
  - Pancytopenia [Unknown]
  - Plasma cell myeloma [Recovering/Resolving]
